FAERS Safety Report 13163572 (Version 1)
Quarter: 2017Q1

REPORT INFORMATION
  Report Type: Spontaneous
  Country: US (occurrence: US)
  Receive Date: 20170130
  Receipt Date: 20170130
  Transmission Date: 20170428
  Serious: No
  Sender: FDA-Public Use
  Company Number: US-TEVA-729974ACC

PATIENT
  Sex: Female

DRUGS (1)
  1. COPAXONE [Suspect]
     Active Substance: GLATIRAMER ACETATE
     Dosage: UNKNOWN FORM STRENGTH

REACTIONS (6)
  - Fatigue [Unknown]
  - Paraesthesia [Unknown]
  - Pain [Unknown]
  - Weight decreased [Unknown]
  - Motor dysfunction [Unknown]
  - Dizziness [Unknown]
